FAERS Safety Report 8862483 (Version 1)
Quarter: 2012Q4

REPORT INFORMATION
  Report Type: 
  Country: US (occurrence: US)
  Receive Date: 20121026
  Receipt Date: 20121026
  Transmission Date: 20130627
  Serious: No
  Sender: FDA-Public Use
  Company Number: US-ALLERGAN-1206495US

PATIENT
  Age: 81 Year
  Sex: Female

DRUGS (17)
  1. ALPHAGAN P [Suspect]
     Indication: DRUG USE FOR UNKNOWN INDICATION
     Dosage: UNK
     Route: 047
  2. NORVASC                            /00972401/ [Concomitant]
     Indication: HEART DISORDER
     Dosage: 5 mg, UNK
  3. MEGAOIL THREE [Concomitant]
     Indication: HEART DISORDER
     Dosage: 4000 mg, UNK
  4. LISINOPRIL [Concomitant]
     Indication: BLOOD PRESSURE
     Dosage: 40 mg, qd
  5. CRESTOR                            /01588601/ [Concomitant]
     Indication: CHOLESTEROL
     Dosage: 10 mg, UNK
  6. LASIX                              /00032601/ [Concomitant]
     Indication: DIURETIC THERAPY
     Dosage: 10 mg, qd
  7. ASA [Concomitant]
     Indication: HEART DISORDER
     Dosage: 325 mg, qd
  8. PROTONIX                           /01263201/ [Concomitant]
     Indication: NAUSEA
     Dosage: 40 mg, qd
  9. GLICLAZICE [Concomitant]
     Indication: DIABETES
     Dosage: 5 mg, qd
  10. TIMOLOL MALEATE [Concomitant]
     Indication: GLAUCOMA
     Dosage: 30 mg, UNK
  11. SYSTANE [Concomitant]
     Indication: DRY EYES
     Dosage: UNK
  12. CLINDAMYCIN [Concomitant]
     Indication: HEART DISORDER
  13. CALCIUM [Concomitant]
     Indication: DRUG USE FOR UNKNOWN INDICATION
     Dosage: 400 mg, UNK
  14. VIT C [Concomitant]
     Indication: DRUG USE FOR UNKNOWN INDICATION
     Dosage: 500 mg, bid
  15. VIT D [Concomitant]
     Indication: DRUG USE FOR UNKNOWN INDICATION
     Dosage: 500 UNITS, qd
  16. MVI [Concomitant]
     Indication: DRUG USE FOR UNKNOWN INDICATION
     Dosage: UNK
  17. LORAZEPAM [Concomitant]
     Indication: ANXIETY
     Dosage: 5 mg, prn
     Dates: start: 20120506

REACTIONS (5)
  - Paraesthesia [Not Recovered/Not Resolved]
  - Paraesthesia oral [Not Recovered/Not Resolved]
  - Tremor [Recovered/Resolved]
  - Blood glucose increased [Unknown]
  - Dry mouth [Not Recovered/Not Resolved]
